FAERS Safety Report 4429366-3 (Version None)
Quarter: 2004Q3

REPORT INFORMATION
  Report Type: 
  Country: None (occurrence: None)
  Receive Date: 20040816
  Receipt Date: 20040805
  Transmission Date: 20050211
  Serious: Yes (Hospitalization)
  Sender: FDA-Public Use
  Company Number: 6009738

PATIENT
  Age: 70 Year
  Sex: Male

DRUGS (10)
  1. BISOPROLOL FUMARATE [Suspect]
     Indication: CARDIAC FAILURE CONGESTIVE
     Dosage: 1,25 MG ORAL
     Route: 048
     Dates: start: 20040304, end: 20040716
  2. ENALAPRIL MALEATE [Suspect]
     Dosage: 20 MG ORAL
     Route: 048
     Dates: start: 20030910, end: 20040716
  3. ENALAPRIL MALEATE [Suspect]
     Dosage: 20 MG ORAL
     Route: 048
     Dates: start: 20040720
  4. ASPIRIN [Concomitant]
  5. SIMVASTATIN [Concomitant]
  6. AMIODARONE HCL [Concomitant]
  7. GLUCOSAMINE SULPHATE (GLUCOSAMINE SULFATE) [Concomitant]
  8. METFORMIN HCL [Concomitant]
  9. ISOSORBIDE MONONITRATE [Concomitant]
  10. ALLOPURINOL [Concomitant]

REACTIONS (4)
  - BUNDLE BRANCH BLOCK LEFT [None]
  - CONFUSIONAL STATE [None]
  - DYSARTHRIA [None]
  - SINUS BRADYCARDIA [None]
